FAERS Safety Report 18666442 (Version 2)
Quarter: 2021Q1

REPORT INFORMATION
  Report Type: Spontaneous
  Country: US (occurrence: US)
  Receive Date: 20201227
  Receipt Date: 20210304
  Transmission Date: 20210419
  Serious: No
  Sender: FDA-Public Use
  Company Number: US-ASTRAZENECA-2020SF61275

PATIENT
  Sex: Female
  Weight: 99.8 kg

DRUGS (7)
  1. SINGULAIR [Concomitant]
     Active Substance: MONTELUKAST SODIUM
     Indication: ASTHMA
     Route: 048
     Dates: start: 202001
  2. XYZAL [Concomitant]
     Active Substance: LEVOCETIRIZINE DIHYDROCHLORIDE
     Indication: ASTHMA
     Route: 048
     Dates: start: 202001
  3. FASENRA [Suspect]
     Active Substance: BENRALIZUMAB
     Indication: ASTHMA
     Dosage: EVERY 4 WEEKS FOR THE FIRST 3 DOSES, THEN EVERY 8 WEEKS THEREAFTER
     Route: 058
     Dates: start: 20200915
  4. SPIRIVA [Concomitant]
     Active Substance: TIOTROPIUM BROMIDE MONOHYDRATE
     Indication: ASTHMA
     Dosage: 1.25 MCG 2 PUFFS EVERY DAY
     Route: 055
     Dates: start: 202001
  5. PREDNISONE. [Concomitant]
     Active Substance: PREDNISONE
     Indication: ASTHMA
     Dosage: VARIES SOMETIMES I DO 40MG FOR 3 DAYS, THEN 30MG FOR 3 DAYS, THEN 20MG FOR 3 DAYS
     Route: 048
  6. VENTOLIN ALBUTEROL [Concomitant]
     Indication: ASTHMA
     Route: 055
  7. XOPENEX NEBULIZER [Concomitant]
     Indication: ASTHMA
     Route: 055

REACTIONS (2)
  - Drug ineffective [Unknown]
  - Therapeutic response shortened [Unknown]
